FAERS Safety Report 15822305 (Version 4)
Quarter: 2019Q3

REPORT INFORMATION
  Report Type: Spontaneous
  Country: US (occurrence: US)
  Receive Date: 20190114
  Receipt Date: 20190723
  Transmission Date: 20191004
  Serious: No
  Sender: FDA-Public Use
  Company Number: US-PFIZER INC-2019010765

PATIENT
  Age: 3 Year
  Sex: Male
  Weight: 16.95 kg

DRUGS (3)
  1. GENOTROPIN [Suspect]
     Active Substance: SOMATROPIN
     Indication: END STAGE RENAL DISEASE
     Dosage: 0.8 MG, UNK
     Dates: start: 201612
  2. GENOTROPIN [Suspect]
     Active Substance: SOMATROPIN
     Dosage: 0.7 MG, 1X/DAY
     Dates: start: 201901
  3. GENOTROPIN [Suspect]
     Active Substance: SOMATROPIN
     Indication: BLOOD GROWTH HORMONE
     Dosage: 0.7 MG, DAILY

REACTIONS (10)
  - Blood albumin decreased [Unknown]
  - Blood phosphorus decreased [Unknown]
  - Blood potassium increased [Unknown]
  - Blood magnesium increased [Unknown]
  - Blood 25-hydroxycholecalciferol decreased [Unknown]
  - Blood triglycerides increased [Unknown]
  - Haemoglobin decreased [Unknown]
  - Haematocrit decreased [Unknown]
  - Blood alkaline phosphatase increased [Unknown]
  - Wrong technique in device usage process [Unknown]

NARRATIVE: CASE EVENT DATE: 20181220
